FAERS Safety Report 18079938 (Version 1)
Quarter: 2020Q3

REPORT INFORMATION
  Report Type: Spontaneous
  Country: GB (occurrence: GB)
  Receive Date: 20200728
  Receipt Date: 20200728
  Transmission Date: 20201103
  Serious: Yes (Other)
  Sender: FDA-Public Use
  Company Number: GB-TEVA-2020-GB-1804251

PATIENT
  Age: 68 Year
  Sex: Female

DRUGS (9)
  1. PREDNISOLONE (PREDNISOLONE) [Suspect]
     Active Substance: PREDNISOLONE
     Indication: HODGKIN^S DISEASE STAGE IV
     Route: 065
  2. DACARBAZINE (DACARBAZINE CITRATE) INJECTION; [Suspect]
     Active Substance: DACARBAZINE CITRATE
     Indication: HODGKIN^S DISEASE STAGE IV
     Route: 041
  3. CHLORAMBUCIL (CHLORAMBUCIL) [Suspect]
     Active Substance: CHLORAMBUCIL
     Indication: HODGKIN^S DISEASE STAGE IV
     Route: 065
  4. BLEO FOR INJ. 5MG (BLEOMYCIN HYDROCHLORIDE) INJECTION [Suspect]
     Active Substance: BLEOMYCIN HYDROCHLORIDE
     Indication: HODGKIN^S DISEASE STAGE IV
     Route: 041
  5. ONCOVIN [Suspect]
     Active Substance: VINCRISTINE SULFATE
     Indication: HODGKIN^S DISEASE STAGE IV
     Route: 065
  6. EXAL FOR INJ. 10MG (VINBLASTINES ULFATE) INJECTION; [Suspect]
     Active Substance: VINBLASTINE SULFATE
     Indication: HODGKIN^S DISEASE STAGE IV
     Route: 040
  7. DOXORUBICIN HYDROCHLORIDE FOR INJECTION 50MG [Suspect]
     Active Substance: DOXORUBICIN HYDROCHLORIDE
     Indication: HODGKIN^S DISEASE STAGE IV
     Route: 041
  8. LASTET INJ. 100MG/5ML (ETOPOSIDE) INJECTION [Suspect]
     Active Substance: ETOPOSIDE
     Indication: HODGKIN^S DISEASE STAGE IV
     Route: 065
  9. PROCARBAZINE (PROCARBAZINE HYDROCHLORIDE) [Suspect]
     Active Substance: PROCARBAZINE HYDROCHLORIDE
     Indication: HODGKIN^S DISEASE STAGE IV
     Route: 065

REACTIONS (2)
  - Posterior reversible encephalopathy syndrome [Unknown]
  - Encephalitis viral [Unknown]
